FAERS Safety Report 20206911 (Version 1)
Quarter: 2021Q4

REPORT INFORMATION
  Report Type: Spontaneous
  Country: HU (occurrence: HU)
  Receive Date: 20211220
  Receipt Date: 20211220
  Transmission Date: 20220303
  Serious: Yes (Other)
  Sender: FDA-Public Use
  Company Number: HU-BAYER-2021A267083

PATIENT
  Age: 27 Year
  Sex: Female
  Weight: 70 kg

DRUGS (3)
  1. AVELOX [Suspect]
     Active Substance: MOXIFLOXACIN HYDROCHLORIDE
     Indication: Pneumonia
     Dosage: 400 MG, QD
     Route: 048
     Dates: start: 20211116, end: 20211130
  2. AFLAMIN [ACECLOFENAC] [Concomitant]
     Dosage: 100 MG
     Dates: start: 20211116, end: 20211130
  3. LEVIL [Concomitant]
     Indication: Epilepsy
     Dosage: 750 MG, BID
     Dates: start: 202006

REACTIONS (3)
  - Generalised tonic-clonic seizure [Recovered/Resolved]
  - Postictal state [Recovered/Resolved]
  - Dysgeusia [Recovered/Resolved]

NARRATIVE: CASE EVENT DATE: 20211130
